FAERS Safety Report 9684540 (Version 3)
Quarter: 2013Q4

REPORT INFORMATION
  Report Type: Spontaneous
  Country: CN (occurrence: CN)
  Receive Date: 20131112
  Receipt Date: 20131212
  Transmission Date: 20140711
  Serious: Yes (Other)
  Sender: FDA-Public Use
  Company Number: CN-GILEAD-2013-0087280

PATIENT
  Age: 25 Year
  Sex: Female

DRUGS (4)
  1. ADEFOVIR DIPIVOXIL [Suspect]
     Indication: LIVER INJURY
     Dosage: 1TAB PER DAY
     Route: 048
     Dates: start: 201207
  2. HEPTODIN [Suspect]
     Indication: LIVER INJURY
     Dosage: 1TAB PER DAY
     Route: 048
     Dates: start: 201207
  3. HEPTODIN [Suspect]
     Indication: LIVER INJURY
  4. TCM [Concomitant]
     Indication: HEPATIC CIRRHOSIS
     Dosage: 5TAB THREE TIMES PER DAY
     Route: 048
     Dates: start: 2013

REACTIONS (3)
  - Hepatic cirrhosis [Not Recovered/Not Resolved]
  - Drug ineffective [Unknown]
  - Product quality issue [Unknown]
